FAERS Safety Report 9262802 (Version 1)
Quarter: 2013Q2

REPORT INFORMATION
  Report Type: Spontaneous
  Country: GB (occurrence: GB)
  Receive Date: 20130430
  Receipt Date: 20130430
  Transmission Date: 20140414
  Serious: Yes (Life-Threatening)
  Sender: FDA-Public Use
  Company Number: GB-009507513-1304GBR015772

PATIENT
  Age: 41 Year
  Sex: Female
  Weight: 76 kg

DRUGS (2)
  1. NEXPLANON [Suspect]
     Indication: CONTRACEPTION
     Dosage: UNK
     Route: 058
     Dates: start: 20130322, end: 20130402
  2. LITHIUM CARBONATE [Suspect]
     Indication: DEPRESSION
     Dosage: UNK
     Dates: start: 2012

REACTIONS (2)
  - Toxicity to various agents [Unknown]
  - Hypersensitivity [Recovered/Resolved]
